FAERS Safety Report 20485684 (Version 2)
Quarter: 2022Q1

REPORT INFORMATION
  Report Type: Report from Study
  Country: US (occurrence: US)
  Receive Date: 20220217
  Receipt Date: 20220321
  Transmission Date: 20220424
  Serious: Yes (Hospitalization)
  Sender: FDA-Public Use
  Company Number: US-EXELIXIS-CABO-22049040

PATIENT
  Sex: Male
  Weight: 96.61 kg

DRUGS (3)
  1. CABOMETYX [Suspect]
     Active Substance: CABOZANTINIB S-MALATE
     Indication: Renal cancer
     Dosage: UNK
     Route: 048
     Dates: end: 20211208
  2. CABOMETYX [Suspect]
     Active Substance: CABOZANTINIB S-MALATE
     Dosage: UNK
     Route: 048
  3. FOTIVDA [Suspect]
     Active Substance: TIVOZANIB HYDROCHLORIDE
     Indication: Renal cancer
     Dosage: UNK

REACTIONS (6)
  - Pleural effusion [Unknown]
  - Adverse drug reaction [Unknown]
  - Diarrhoea [Unknown]
  - Fatigue [Unknown]
  - Dysphonia [Unknown]
  - Rash [Unknown]
